FAERS Safety Report 19464657 (Version 2)
Quarter: 2021Q2

REPORT INFORMATION
  Report Type: Spontaneous
  Country: FR (occurrence: FR)
  Receive Date: 20210626
  Receipt Date: 20210626
  Transmission Date: 20210717
  Serious: Yes (Other)
  Sender: FDA-Public Use
  Company Number: NVSC2021FR041490

PATIENT
  Age: 5 Year
  Sex: Female

DRUGS (8)
  1. PIRACETAM [Suspect]
     Active Substance: PIRACETAM
     Indication: EPILEPSY
     Dosage: UNK
     Route: 065
  2. SODIUM VALPROATE [Suspect]
     Active Substance: VALPROATE SODIUM
     Indication: EPILEPSY
     Dosage: UNK
     Route: 065
  3. LAMOTRIGINE. [Suspect]
     Active Substance: LAMOTRIGINE
     Indication: EPILEPSY
     Dosage: UNK
     Route: 065
  4. ZONISAMIDE. [Suspect]
     Active Substance: ZONISAMIDE
     Indication: EPILEPSY
     Dosage: UNK
     Route: 065
  5. EPITOMAX [Suspect]
     Active Substance: TOPIRAMATE
     Indication: EPILEPSY
     Dosage: UNK
     Route: 048
  6. LEVETIRACETAM. [Suspect]
     Active Substance: LEVETIRACETAM
     Indication: EPILEPSY
     Dosage: UNK
     Route: 065
  7. EPITOMAX [Suspect]
     Active Substance: TOPIRAMATE
     Indication: FEBRILE CONVULSION
  8. CLOBAZAM. [Suspect]
     Active Substance: CLOBAZAM
     Indication: EPILEPSY
     Dosage: UNK
     Route: 065

REACTIONS (8)
  - Food refusal [Unknown]
  - Drug resistance [Unknown]
  - Drug ineffective [Unknown]
  - High-pitched crying [Unknown]
  - Sedation [Unknown]
  - Gastric disorder [Unknown]
  - Apathy [Unknown]
  - Decreased interest [Unknown]
